FAERS Safety Report 25360842 (Version 4)
Quarter: 2025Q4

REPORT INFORMATION
  Report Type: Report from Study
  Country: GB (occurrence: GB)
  Receive Date: 20250527
  Receipt Date: 20251231
  Transmission Date: 20260118
  Serious: Yes (Hospitalization, Other)
  Sender: SAMSUNG BIOEPIS
  Company Number: GB-SAMSUNG BIOEPIS-SB-2025-18119

PATIENT
  Age: 79 Year
  Sex: Female

DRUGS (2)
  1. ETANERCEPT [Suspect]
     Active Substance: ETANERCEPT
     Indication: Rheumatoid arthritis
     Route: 058
  2. ETANERCEPT [Suspect]
     Active Substance: ETANERCEPT
     Dosage: LAST INFUSION WAS ON 19-DEC-2025;
     Route: 058
     Dates: start: 20250917

REACTIONS (5)
  - Cerebrovascular accident [Unknown]
  - Myocardial infarction [Unknown]
  - Asthenia [Unknown]
  - Stenosis [Unknown]
  - Product use issue [Unknown]
